FAERS Safety Report 4470048-X (Version None)
Quarter: 2004Q3

REPORT INFORMATION
  Report Type: 
  Country: None (occurrence: None)
  Receive Date: 20040920
  Receipt Date: 20040826
  Transmission Date: 20050211
  Serious: Yes (Other)
  Sender: FDA-Public Use
  Company Number: PHEH2004US08538

PATIENT
  Age: 86 Year
  Sex: Female

DRUGS (3)
  1. ZOMETA [Suspect]
     Indication: MULTIPLE MYELOMA
     Dosage: 4 MG MONTHLY, INTRAVENOUS
     Route: 042
     Dates: start: 20030404, end: 20040308
  2. PREDNISONE [Concomitant]
  3. MELPHALAN (MELPHALAN) [Concomitant]

REACTIONS (3)
  - GINGIVAL EROSION [None]
  - OSTEONECROSIS [None]
  - TOOTH LOSS [None]
